FAERS Safety Report 5844493-1 (Version None)
Quarter: 2008Q3

REPORT INFORMATION
  Report Type: 
  Country: None (occurrence: None)
  Receive Date: 20080811
  Receipt Date: 20080805
  Transmission Date: 20090109
  Serious: Yes (Life-Threatening, Hospitalization)
  Sender: FDA-Public Use
  Company Number: JHP200800200

PATIENT
  Age: 83 Year
  Sex: Male

DRUGS (1)
  1. EPINEPHRINE [Suspect]
     Indication: HYPOTENSION
     Dosage: 100 UG, BOLUS, IV BOLUS
     Route: 040

REACTIONS (3)
  - ELECTROMECHANICAL DISSOCIATION [None]
  - HYPERTENSION [None]
  - OPERATIVE HAEMORRHAGE [None]
